FAERS Safety Report 7141814-7 (Version None)
Quarter: 2010Q4

REPORT INFORMATION
  Report Type: 
  Country: None (occurrence: None)
  Receive Date: 20101202
  Receipt Date: 20101202
  Transmission Date: 20110411
  Serious: Yes (Other)
  Sender: FDA-Public Use
  Company Number: None

PATIENT
  Sex: Female
  Weight: 54.7 kg

DRUGS (8)
  1. MESTINON [Suspect]
     Indication: MYASTHENIA GRAVIS
     Dosage: MESTINON 180 MG TIMESPAN QHS ORALLY; MESTINON 180 MG TIMESPAN 1/2 TAB 1400 ORALLY
     Route: 048
     Dates: start: 20101105
  2. FUROSEMIDE [Concomitant]
  3. ASPIRIN [Concomitant]
  4. POTASSIUM CHLORIDE [Concomitant]
  5. METOPROLOL [Concomitant]
  6. PLAVIX [Concomitant]
  7. LISINOPRIL [Concomitant]
  8. GAMMAGARD [Concomitant]

REACTIONS (3)
  - DIARRHOEA [None]
  - DIZZINESS [None]
  - MOVEMENT DISORDER [None]
